FAERS Safety Report 9261650 (Version 1)
Quarter: 2013Q2

REPORT INFORMATION
  Report Type: Spontaneous
  Country: US (occurrence: US)
  Receive Date: 20130429
  Receipt Date: 20130429
  Transmission Date: 20140414
  Serious: Yes (Hospitalization)
  Sender: FDA-Public Use
  Company Number: US-BAYER-2013-051911

PATIENT
  Age: 22 Year
  Sex: Female

DRUGS (6)
  1. BEYAZ [Suspect]
  2. DIFLUCAN [Concomitant]
     Indication: VULVOVAGINAL CANDIDIASIS
     Dosage: 150 MG, UNK
     Route: 048
     Dates: start: 20110815
  3. FERROUS SULPHATE [Concomitant]
     Dosage: UNK
     Route: 048
     Dates: start: 20110906
  4. MOTRIN [Concomitant]
     Dosage: UNK
     Route: 048
     Dates: start: 20111128
  5. OXYCODONE [Concomitant]
     Indication: PAIN
  6. MORPHINE [Concomitant]
     Indication: PAIN

REACTIONS (1)
  - Deep vein thrombosis [None]
